FAERS Safety Report 9852839 (Version 1)
Quarter: 2014Q1

REPORT INFORMATION
  Report Type: Spontaneous
  Country: TR (occurrence: None)
  Receive Date: 20140127
  Receipt Date: 20140127
  Transmission Date: 20141002
  Serious: Yes (Other)
  Sender: FDA-Public Use
  Company Number: 2014P1000435

PATIENT
  Age: 64 Year
  Sex: Female

DRUGS (6)
  1. ALPRAZOLAM [Suspect]
     Indication: INSOMNIA
  2. TRAMADOL [Suspect]
     Indication: INSOMNIA
  3. LORAZEPAM [Suspect]
     Indication: INSOMNIA
  4. MIDAZOLAM [Suspect]
     Indication: INSOMNIA
  5. BROMAZEPAM [Suspect]
     Indication: INSOMNIA
  6. MIRTAZAPINE [Suspect]
     Indication: INSOMNIA

REACTIONS (3)
  - Status epilepticus [None]
  - Drug abuse [None]
  - Drug interaction [None]
